FAERS Safety Report 14385039 (Version 7)
Quarter: 2018Q1

REPORT INFORMATION
  Report Type: Spontaneous
  Country: DE (occurrence: DE)
  Receive Date: 20180115
  Receipt Date: 20180115
  Transmission Date: 20180509
  Serious: Yes (Other)
  Sender: FDA-Public Use
  Company Number: DE-CONCORDIA PHARMACEUTICALS INC.-E2B_00008878

PATIENT
  Age: 54 Year
  Sex: Female

DRUGS (1)
  1. PREDNISOLONE. [Suspect]
     Active Substance: PREDNISOLONE
     Indication: IRITIS
     Dosage: 1 GTT, Q2HR
     Route: 047
     Dates: start: 1992

REACTIONS (2)
  - Conjunctivitis [Unknown]
  - Lacrimation disorder [Not Recovered/Not Resolved]

NARRATIVE: CASE EVENT DATE: 2017
